FAERS Safety Report 9962905 (Version 1)
Quarter: 2014Q1

REPORT INFORMATION
  Report Type: Report from Study
  Country: US (occurrence: US)
  Receive Date: 20140305
  Receipt Date: 20140305
  Transmission Date: 20141002
  Serious: No
  Sender: FDA-Public Use
  Company Number: US-ABBVIE-13P-163-1111893-00

PATIENT
  Age: 35 Year
  Sex: Female
  Weight: 138.92 kg

DRUGS (16)
  1. HUMIRA [Suspect]
     Indication: PSORIATIC ARTHROPATHY
  2. ENBREL [Suspect]
     Indication: PSORIATIC ARTHROPATHY
     Dates: end: 20130618
  3. SIMVASTATIN [Concomitant]
     Indication: BLOOD CHOLESTEROL INCREASED
  4. FENOFIBRATE [Concomitant]
     Indication: BLOOD CHOLESTEROL INCREASED
  5. ZOLOFT [Concomitant]
     Indication: DEPRESSION
  6. WELLBUTRIN [Concomitant]
     Indication: DEPRESSION
  7. PRILOSEC [Concomitant]
     Indication: GASTROOESOPHAGEAL REFLUX DISEASE
  8. PLAQUENIL [Concomitant]
     Indication: PSORIATIC ARTHROPATHY
  9. CYCLOBENZAPRINE [Concomitant]
     Indication: PAIN
  10. CYCLOBENZAPRINE [Concomitant]
     Indication: SLEEP DISORDER THERAPY
  11. ULTRAM [Concomitant]
     Indication: ARTHRALGIA
  12. CELEBREX [Concomitant]
     Indication: PSORIATIC ARTHROPATHY
  13. TOPIRAMATE [Concomitant]
     Indication: HEADACHE
  14. METHOTREXATE [Concomitant]
     Indication: PSORIATIC ARTHROPATHY
  15. LEUCOVORVIN [Concomitant]
     Indication: ARTHRITIS
  16. TRINESSA [Concomitant]
     Indication: CONTRACEPTION

REACTIONS (6)
  - Pharyngeal oedema [Recovered/Resolved]
  - Injection site erythema [Recovered/Resolved]
  - Injection site swelling [Recovered/Resolved]
  - Injection site pruritus [Recovered/Resolved]
  - Oropharyngeal pain [Recovered/Resolved]
  - Pharyngeal oedema [Recovered/Resolved]
